FAERS Safety Report 10017260 (Version 1)
Quarter: 2014Q1

REPORT INFORMATION
  Report Type: Spontaneous
  Country: US (occurrence: US)
  Receive Date: 20140318
  Receipt Date: 20140318
  Transmission Date: 20141002
  Serious: No
  Sender: FDA-Public Use
  Company Number: US-SHIRE-US201400451

PATIENT
  Sex: 0

DRUGS (3)
  1. VYVANSE [Suspect]
     Indication: ATTENTION DEFICIT/HYPERACTIVITY DISORDER
     Dosage: 30 MG, 1X/DAY:QD
     Route: 048
     Dates: start: 201308, end: 20140305
  2. VYVANSE [Suspect]
     Dosage: UNK UNK (REPORTED AS ^10 MG^), 1X/DAY:QD
     Route: 048
     Dates: start: 2011, end: 2011
  3. VYVANSE [Suspect]
     Dosage: 20 MG, 1X/DAY:QD
     Route: 048
     Dates: start: 2012, end: 201308

REACTIONS (4)
  - Gingival recession [Not Recovered/Not Resolved]
  - Dental caries [Not Recovered/Not Resolved]
  - Tooth disorder [Recovered/Resolved]
  - Dry mouth [Recovering/Resolving]
